FAERS Safety Report 24168540 (Version 3)
Quarter: 2025Q3

REPORT INFORMATION
  Report Type: Report from Study
  Country: JP (occurrence: JP)
  Receive Date: 20240802
  Receipt Date: 20250905
  Transmission Date: 20251021
  Serious: Yes (Hospitalization)
  Sender: DAIICHI
  Company Number: JP-DSJP-DSJ-2024-137769

PATIENT
  Age: 8 Decade
  Sex: Male
  Weight: 47.1 kg

DRUGS (4)
  1. ENHERTU [Suspect]
     Active Substance: FAM-TRASTUZUMAB DERUXTECAN-NXKI
     Indication: HER2 positive gastric cancer
     Dosage: 5.0 MG/KG, ONCE EVERY 3 WK
     Route: 041
     Dates: start: 20240417, end: 20240417
  2. CORTICOSTEROID NOS [Concomitant]
     Active Substance: CORTICOSTEROID NOS
     Indication: Antiemetic supportive care
     Route: 065
  3. PALONOSETRON [Concomitant]
     Active Substance: PALONOSETRON
     Indication: Antiemetic supportive care
     Route: 065
  4. METOCLOPRAMIDE [Concomitant]
     Active Substance: METOCLOPRAMIDE
     Indication: Antiemetic supportive care
     Route: 065

REACTIONS (7)
  - Pneumonia bacterial [Recovered/Resolved]
  - Nausea [Unknown]
  - Vomiting [Unknown]
  - Decreased appetite [Unknown]
  - Malaise [Unknown]
  - Disease progression [Unknown]
  - Underdose [Unknown]

NARRATIVE: CASE EVENT DATE: 20240101
